FAERS Safety Report 6007573-6 (Version None)
Quarter: 2008Q4

REPORT INFORMATION
  Report Type: 
  Country: None (occurrence: None)
  Receive Date: 20081217
  Receipt Date: 20080513
  Transmission Date: 20090506
  Serious: No
  Sender: FDA-Public Use
  Company Number: US-ASTRAZENECA-2008UW09797

PATIENT
  Age: 29062 Day
  Sex: Female
  Weight: 77.1 kg

DRUGS (8)
  1. CRESTOR [Suspect]
     Indication: HYPERCHOLESTEROLAEMIA
     Route: 048
     Dates: start: 20080422, end: 20080508
  2. SPIRONOLACTONE [Concomitant]
  3. PLAVIX [Concomitant]
  4. AGGRENOX [Concomitant]
  5. ATENOLOL [Concomitant]
  6. ENALAPRIL MALEATE [Concomitant]
  7. VITALOR [Concomitant]
  8. METENIX [Concomitant]

REACTIONS (2)
  - BONE PAIN [None]
  - MUSCLE SPASMS [None]
